FAERS Safety Report 5982001-5 (Version None)
Quarter: 2008Q4

REPORT INFORMATION
  Report Type: 
  Country: None (occurrence: None)
  Receive Date: 20081202
  Receipt Date: 20081124
  Transmission Date: 20090506
  Serious: Yes (Death, Hospitalization)
  Sender: FDA-Public Use
  Company Number: 2008SP023986

PATIENT
  Age: 60 Year
  Sex: Male

DRUGS (8)
  1. INTEGRILIN [Suspect]
     Indication: DRUG USE FOR UNKNOWN INDICATION
     Dosage: INBO
     Dates: start: 20081018
  2. PLAVIX [Suspect]
     Indication: DRUG USE FOR UNKNOWN INDICATION
     Dosage: 75 MG; PO
     Route: 048
     Dates: start: 20081018, end: 20081018
  3. PLAVIX [Suspect]
     Indication: DRUG USE FOR UNKNOWN INDICATION
     Dosage: 75 MG; PO
     Route: 048
     Dates: start: 20081019
  4. ANGIOMAX [Suspect]
     Indication: DRUG USE FOR UNKNOWN INDICATION
     Dosage: IV
     Route: 042
     Dates: start: 20081018
  5. ZOCOR [Concomitant]
  6. TOPROL-XL [Concomitant]
  7. LISINOPRIL [Concomitant]
  8. ASPIRIN [Concomitant]

REACTIONS (9)
  - ACUTE MYOCARDIAL INFARCTION [None]
  - CONFUSIONAL STATE [None]
  - DISSEMINATED INTRAVASCULAR COAGULATION [None]
  - ELECTROMECHANICAL DISSOCIATION [None]
  - HYPOTENSION [None]
  - PLATELET COUNT DECREASED [None]
  - POST PROCEDURAL HAEMATOMA [None]
  - PROTHROMBIN TIME PROLONGED [None]
  - THROMBOSIS [None]
